FAERS Safety Report 15183650 (Version 2)
Quarter: 2018Q3

REPORT INFORMATION
  Report Type: Spontaneous
  Country: MY (occurrence: MY)
  Receive Date: 20180723
  Receipt Date: 20180829
  Transmission Date: 20181010
  Serious: Yes (Other)
  Sender: FDA-Public Use
  Company Number: MY-PFIZER INC-2018291781

PATIENT
  Age: 74 Day

DRUGS (1)
  1. ALPROSTADIL. [Suspect]
     Active Substance: ALPROSTADIL
     Indication: HEART DISEASE CONGENITAL
     Dosage: (INFUSION) STARTED SINCE DAY 1 OF LIFE

REACTIONS (1)
  - Infantile cortical hyperostosis [Unknown]
